FAERS Safety Report 25106573 (Version 2)
Quarter: 2025Q3

REPORT INFORMATION
  Report Type: Report from Study
  Country: US (occurrence: US)
  Receive Date: 20250321
  Receipt Date: 20250702
  Transmission Date: 20251021
  Serious: Yes (Death, Hospitalization, Other)
  Sender: TAKEDA
  Company Number: US-TAKEDA-2025TUS027969

PATIENT
  Age: 59 Year
  Sex: Male

DRUGS (9)
  1. FRUQUINTINIB [Suspect]
     Active Substance: FRUQUINTINIB
     Indication: Rectal cancer
     Dates: start: 20250203, end: 20250313
  2. FRUQUINTINIB [Suspect]
     Active Substance: FRUQUINTINIB
  3. MORPHINE SULFATE [Concomitant]
     Active Substance: MORPHINE SULFATE
  4. LYRICA [Concomitant]
     Active Substance: PREGABALIN
  5. FUROSEMIDE [Concomitant]
     Active Substance: FUROSEMIDE
  6. KEFLEX [Concomitant]
     Active Substance: CEPHALEXIN
  7. XARELTO [Concomitant]
     Active Substance: RIVAROXABAN
  8. FLOMAX [Concomitant]
     Active Substance: TAMSULOSIN HYDROCHLORIDE
  9. ONDANSETRON [Concomitant]
     Active Substance: ONDANSETRON

REACTIONS (2)
  - Death [Fatal]
  - Urinary tract stoma complication [Recovering/Resolving]

NARRATIVE: CASE EVENT DATE: 20250618
